FAERS Safety Report 8273488-6 (Version None)
Quarter: 2012Q2

REPORT INFORMATION
  Report Type: 
  Country: None (occurrence: None)
  Receive Date: 20120409
  Receipt Date: 20120409
  Transmission Date: 20120825
  Serious: Yes (Death)
  Sender: FDA-Public Use
  Company Number: None

PATIENT
  Sex: Female

DRUGS (1)
  1. SYNAGIS [Suspect]
     Dosage: 15MG/KG 1X MONTH IM
     Route: 030

REACTIONS (1)
  - UNEVALUABLE EVENT [None]
